FAERS Safety Report 5525955-3 (Version None)
Quarter: 2007Q4

REPORT INFORMATION
  Report Type: 
  Country: None (occurrence: None)
  Receive Date: 20071126
  Receipt Date: 20071114
  Transmission Date: 20080405
  Serious: Yes (Hospitalization, Other)
  Sender: FDA-Public Use
  Company Number: US-PFIZER INC-2007097570

PATIENT
  Sex: Female

DRUGS (2)
  1. GEODON [Suspect]
     Indication: SCHIZOPHRENIA
     Dates: start: 19990101, end: 20070101
  2. DEPAKOTE [Suspect]
     Indication: SCHIZOPHRENIA
     Dates: start: 20070101, end: 20070101

REACTIONS (8)
  - BLOOD CHOLESTEROL INCREASED [None]
  - CHOKING SENSATION [None]
  - DYSKINESIA [None]
  - PAIN IN JAW [None]
  - PSYCHOTIC DISORDER [None]
  - SALIVARY HYPERSECRETION [None]
  - TRISMUS [None]
  - WEIGHT INCREASED [None]
